FAERS Safety Report 6646187-1 (Version None)
Quarter: 2010Q1

REPORT INFORMATION
  Report Type: 
  Country: None (occurrence: None)
  Receive Date: 20100323
  Receipt Date: 20100311
  Transmission Date: 20100710
  Serious: Yes (Other)
  Sender: FDA-Public Use
  Company Number: ES-PFIZER INC-2009300433

PATIENT
  Age: 48 Year
  Sex: Male

DRUGS (2)
  1. CADUET [Suspect]
     Dosage: [AMLODIPINE 5 MG]/[ATORVASTATIN 10 MG]; DAILY
     Route: 048
     Dates: start: 20091103, end: 20091202
  2. DIACEREIN [Concomitant]
     Dosage: UNK
     Route: 048
     Dates: start: 20090618, end: 20091115

REACTIONS (3)
  - DISORIENTATION [None]
  - DIZZINESS [None]
  - HEADACHE [None]
